FAERS Safety Report 10507500 (Version 2)
Quarter: 2014Q4

REPORT INFORMATION
  Report Type: Report from Study
  Country: US (occurrence: US)
  Receive Date: 20141009
  Receipt Date: 20141009
  Transmission Date: 20150528
  Serious: Yes (Other)
  Sender: FDA-Public Use
  Company Number: US-ALEXION PHARMACEUTICALS INC-A200800799

PATIENT

DRUGS (1)
  1. SOLIRIS [Suspect]
     Active Substance: ECULIZUMAB
     Indication: PAROXYSMAL NOCTURNAL HAEMOGLOBINURIA

REACTIONS (8)
  - Blood urine present [Unknown]
  - Asthenia [Unknown]
  - Haematocrit decreased [Unknown]
  - Chromaturia [Unknown]
  - Dizziness [Unknown]
  - Dyspnoea exertional [Unknown]
  - Fatigue [Unknown]
  - Haemolysis [Unknown]
